FAERS Safety Report 16822963 (Version 1)
Quarter: 2019Q3

REPORT INFORMATION
  Report Type: Spontaneous
  Country: US (occurrence: US)
  Receive Date: 20190918
  Receipt Date: 20190918
  Transmission Date: 20191005
  Serious: Yes (Hospitalization)
  Sender: FDA-Public Use
  Company Number: US-ROCHE-2405546

PATIENT
  Sex: Male

DRUGS (7)
  1. ARIPIPRAZOLE. [Concomitant]
     Active Substance: ARIPIPRAZOLE
  2. XOLAIR [Suspect]
     Active Substance: OMALIZUMAB
     Indication: SKIN INFECTION
  3. GUANFACINE. [Concomitant]
     Active Substance: GUANFACINE
  4. OXCARBAZEPINE. [Concomitant]
     Active Substance: OXCARBAZEPINE
  5. XOLAIR [Suspect]
     Active Substance: OMALIZUMAB
     Indication: BRONCHITIS
     Route: 058
     Dates: start: 20180220, end: 20190905
  6. DROSPIRENONE [Concomitant]
     Active Substance: DROSPIRENONE
  7. NARCAN [Concomitant]
     Active Substance: NALOXONE HYDROCHLORIDE

REACTIONS (3)
  - Loss of consciousness [Unknown]
  - Off label use [Unknown]
  - Intentional product use issue [Unknown]
